FAERS Safety Report 20378458 (Version 1)
Quarter: 2022Q1

REPORT INFORMATION
  Report Type: Spontaneous
  Country: US (occurrence: None)
  Receive Date: 20220125
  Receipt Date: 20220125
  Transmission Date: 20220423
  Serious: Yes (Hospitalization)
  Sender: FDA-Public Use
  Company Number: None

PATIENT
  Age: 64 Year
  Sex: Male
  Weight: 110 kg

DRUGS (11)
  1. PAXLOVID [Suspect]
     Active Substance: NIRMATRELVIR\RITONAVIR
     Indication: COVID-19
     Dosage: FREQUENCY : TWICE A DAY;?
     Route: 048
     Dates: start: 20220119, end: 20220124
  2. RAMIPRIL [Concomitant]
     Active Substance: RAMIPRIL
  3. NP THYROID [Concomitant]
     Active Substance: LEVOTHYROXINE\LIOTHYRONINE
  4. Trulicity 4.5 mg/0.5 mL [Concomitant]
  5. GLIMEPIRIDE [Concomitant]
     Active Substance: GLIMEPIRIDE
  6. FENOFIBRATE [Concomitant]
     Active Substance: FENOFIBRATE
  7. dexamethasone 6 mg [Concomitant]
  8. CHLORTHALIDONE [Concomitant]
     Active Substance: CHLORTHALIDONE
  9. ASPIRIN [Concomitant]
     Active Substance: ASPIRIN
  10. alubterol HFA [Concomitant]
  11. ACETAMINOPHEN [Concomitant]
     Active Substance: ACETAMINOPHEN

REACTIONS (8)
  - Dyspnoea [None]
  - Abdominal pain [None]
  - Hypophagia [None]
  - Blood glucose increased [None]
  - Pyrexia [None]
  - Nausea [None]
  - Urine output decreased [None]
  - Pancreatitis acute [None]

NARRATIVE: CASE EVENT DATE: 20220124
